FAERS Safety Report 17302172 (Version 1)
Quarter: 2020Q1

REPORT INFORMATION
  Report Type: Spontaneous
  Country: SE (occurrence: SE)
  Receive Date: 20200122
  Receipt Date: 20200122
  Transmission Date: 20200409
  Serious: Yes (Hospitalization)
  Sender: FDA-Public Use
  Company Number: SE-MYLANLABS-2020M1007614

PATIENT
  Age: 54 Year
  Sex: Male

DRUGS (2)
  1. LERGIGAN (PROMETHAZINE HYDROCHLORIDE) [Suspect]
     Active Substance: PROMETHAZINE HYDROCHLORIDE
     Indication: PRODUCT USED FOR UNKNOWN INDICATION
     Dosage: 12 ST.
     Route: 048
     Dates: start: 20180512, end: 20180512
  2. QUETIAPINE. [Suspect]
     Active Substance: QUETIAPINE
     Indication: PRODUCT USED FOR UNKNOWN INDICATION
     Dosage: 6 ST
     Route: 048
     Dates: start: 20180512, end: 20180512

REACTIONS (5)
  - Intentional overdose [Unknown]
  - Fatigue [Unknown]
  - Intentional self-injury [Unknown]
  - Palpitations [Unknown]
  - Dizziness [Unknown]

NARRATIVE: CASE EVENT DATE: 20180512
